FAERS Safety Report 8024755-2 (Version None)
Quarter: 2012Q1

REPORT INFORMATION
  Report Type: 
  Country: None (occurrence: None)
  Receive Date: 20120103
  Receipt Date: 20111220
  Transmission Date: 20120608
  Serious: Yes (Congenital Anomaly)
  Sender: FDA-Public Use
  Company Number: 2011MA018062

PATIENT
  Sex: Male

DRUGS (1)
  1. FINASTERIDE [Suspect]

REACTIONS (3)
  - PATERNAL DRUGS AFFECTING FOETUS [None]
  - PENIS DISORDER [None]
  - CRYPTORCHISM [None]
